FAERS Safety Report 18848435 (Version 1)
Quarter: 2021Q1

REPORT INFORMATION
  Report Type: Spontaneous
  Country: CH (occurrence: CH)
  Receive Date: 20210204
  Receipt Date: 20210204
  Transmission Date: 20210419
  Serious: Yes (Other)
  Sender: FDA-Public Use
  Company Number: CH-TEVA-2021-CH-1874466

PATIENT
  Age: 53 Year
  Sex: Male

DRUGS (1)
  1. CAPECITABINE. [Suspect]
     Active Substance: CAPECITABINE
     Indication: RECTAL CANCER STAGE II
     Dosage: 1650 MG/M2 DAILY; 1,650 MG/M2 BODY SURFACE AREA DIVIDED INTO TWO DOSES DAILY FOR THE ENTIRE DURATION
     Route: 048

REACTIONS (3)
  - Peripheral sensory neuropathy [Recovered/Resolved]
  - Herpes zoster meningomyelitis [Recovering/Resolving]
  - Varicella zoster virus infection [Recovering/Resolving]
